FAERS Safety Report 6241863-7 (Version None)
Quarter: 2009Q2

REPORT INFORMATION
  Report Type: 
  Country: None (occurrence: None)
  Receive Date: 20090623
  Receipt Date: 20090611
  Transmission Date: 20091009
  Serious: Yes (Death)
  Sender: FDA-Public Use
  Company Number: KR-PFIZER INC-2009226745

PATIENT
  Age: 65 Year

DRUGS (3)
  1. VORICONAZOLE [Suspect]
     Indication: FUNGAL INFECTION
     Dosage: 400 MG, 2X/DAY
     Route: 042
     Dates: start: 20071026, end: 20071029
  2. ITOPRIDE [Concomitant]
     Indication: GASTROINTESTINAL DISORDER
     Dosage: 150 MG, 3X/DAY
     Route: 048
     Dates: start: 20071010, end: 20071029
  3. VANCOMYCIN [Concomitant]
     Indication: PROPHYLAXIS
     Dosage: 2 G, 2X/DAY
     Route: 042
     Dates: start: 20071015, end: 20071028

REACTIONS (1)
  - DEATH [None]
